FAERS Safety Report 6163424-0 (Version None)
Quarter: 2009Q2

REPORT INFORMATION
  Report Type: 
  Country: None (occurrence: None)
  Receive Date: 20090422
  Receipt Date: 20090420
  Transmission Date: 20091009
  Serious: Yes (Other)
  Sender: FDA-Public Use
  Company Number: US-BAYER-200911054BCC

PATIENT
  Age: 84 Year
  Sex: Male

DRUGS (2)
  1. ASPIRIN [Suspect]
     Indication: CARDIOVASCULAR EVENT PROPHYLAXIS
     Dates: start: 20070101
  2. PLAVIX [Suspect]
     Indication: STENT PLACEMENT
     Dates: start: 20070101

REACTIONS (3)
  - ECCHYMOSIS [None]
  - HAEMORRHAGE [None]
  - VESSEL PERFORATION [None]
